FAERS Safety Report 9167180 (Version 4)
Quarter: 2013Q3

REPORT INFORMATION
  Report Type: Spontaneous
  Country: US (occurrence: US)
  Receive Date: 20130318
  Receipt Date: 20130807
  Transmission Date: 20140515
  Serious: Yes (Hospitalization)
  Sender: FDA-Public Use
  Company Number: US-BIOGENIDEC-2013BI024775

PATIENT
  Age: 27 Year
  Sex: Male

DRUGS (17)
  1. TYSABRI [Suspect]
     Indication: MULTIPLE SCLEROSIS
     Route: 042
     Dates: start: 20070611, end: 20121112
  2. AVONEX [Concomitant]
     Indication: MULTIPLE SCLEROSIS
     Route: 030
     Dates: end: 20070513
  3. PREDNISONE [Concomitant]
     Route: 048
  4. PREDNISONE [Concomitant]
  5. PREDNISONE [Concomitant]
  6. AMIODARONE [Concomitant]
  7. METOPROLOL TARTRATE [Concomitant]
  8. VITAMIN D [Concomitant]
  9. ZYRTEC [Concomitant]
     Indication: RASH
  10. DILTIAZEM HCL [Concomitant]
  11. DOCQLACE [Concomitant]
  12. FAMOTIDINE [Concomitant]
  13. FUROSEMIDE [Concomitant]
  14. SULFAMETHOXAZOLE [Concomitant]
  15. TRIMETHOPRIM [Concomitant]
  16. ZOLPIDEM TARTRATE [Concomitant]
  17. GILENYA [Concomitant]

REACTIONS (10)
  - Pleural effusion [Unknown]
  - Rash [Unknown]
  - Immune system disorder [Not Recovered/Not Resolved]
  - Muscle necrosis [Not Recovered/Not Resolved]
  - Myocarditis [Not Recovered/Not Resolved]
  - Pneumonitis [Not Recovered/Not Resolved]
  - Liver function test abnormal [Not Recovered/Not Resolved]
  - Polymyositis [Unknown]
  - Fall [Recovered/Resolved]
  - Weight decreased [Unknown]
